FAERS Safety Report 8547003-3 (Version None)
Quarter: 2012Q3

REPORT INFORMATION
  Report Type: 
  Country: None (occurrence: None)
  Receive Date: 20120727
  Receipt Date: 20120306
  Transmission Date: 20120928
  Serious: No
  Sender: FDA-Public Use
  Company Number: US-ASTRAZENECA-2012SE15969

PATIENT
  Age: 31 Year
  Sex: Female

DRUGS (1)
  1. SEROQUEL [Suspect]
     Route: 048

REACTIONS (7)
  - ANXIETY [None]
  - NERVOUSNESS [None]
  - ANTISOCIAL BEHAVIOUR [None]
  - DRUG DOSE OMISSION [None]
  - ALCOHOL POISONING [None]
  - PERSONALITY CHANGE [None]
  - INSOMNIA [None]
